FAERS Safety Report 6250158-7 (Version None)
Quarter: 2009Q2

REPORT INFORMATION
  Report Type: 
  Country: None (occurrence: None)
  Receive Date: 20090626
  Receipt Date: 20090619
  Transmission Date: 20091009
  Serious: Yes (Death)
  Sender: FDA-Public Use
  Company Number: CLOF-1000600

PATIENT
  Sex: Male

DRUGS (1)
  1. CLOLAR [Suspect]
     Indication: DRUG USE FOR UNKNOWN INDICATION
     Dosage: INTRAVENOUS
     Route: 042
     Dates: start: 20090101, end: 20090101

REACTIONS (1)
  - DEATH [None]
